FAERS Safety Report 16011954 (Version 1)
Quarter: 2019Q1

REPORT INFORMATION
  Report Type: Spontaneous
  Country: US (occurrence: US)
  Receive Date: 20190226
  Receipt Date: 20190226
  Transmission Date: 20190418
  Serious: Yes (Hospitalization, Other)
  Sender: FDA-Public Use
  Company Number: None

PATIENT
  Age: 44 Year
  Sex: Female

DRUGS (2)
  1. XGEVA [Suspect]
     Active Substance: DENOSUMAB
     Indication: BREAST CANCER
     Dosage: ?          QUANTITY:1 INJECTION(S);?
     Route: 061
  2. LINZESS [Concomitant]
     Active Substance: LINACLOTIDE

REACTIONS (3)
  - Rhinitis [None]
  - Oral pain [None]
  - Osteoporosis [None]
